FAERS Safety Report 5774478-5 (Version None)
Quarter: 2008Q2

REPORT INFORMATION
  Report Type: 
  Country: None (occurrence: None)
  Receive Date: 20080616
  Receipt Date: 20080610
  Transmission Date: 20081010
  Serious: Yes (Other)
  Sender: FDA-Public Use
  Company Number: NZ-BOEHRINGER INGELHEIM GMBH, GERMANY-2008-BP-09052RO

PATIENT
  Age: 79 Year
  Sex: Female

DRUGS (4)
  1. LIDOCAINE [Suspect]
     Indication: NERVE BLOCK
  2. PREDNISONE TAB [Suspect]
     Indication: POLYMYALGIA RHEUMATICA
  3. BUPIVACAINE [Suspect]
     Indication: NERVE BLOCK
  4. HYLALASE [Suspect]
     Indication: NERVE BLOCK

REACTIONS (1)
  - RETINAL ARTERY OCCLUSION [None]
